FAERS Safety Report 22797938 (Version 2)
Quarter: 2024Q3

REPORT INFORMATION
  Report Type: Report from Study
  Country: US (occurrence: US)
  Receive Date: 20230808
  Receipt Date: 20240925
  Transmission Date: 20241016
  Serious: No
  Sender: GLAXOSMITHKLINE
  Company Number: US-GLAXOSMITHKLINE-US2023AMR104883

PATIENT
  Sex: Female

DRUGS (1)
  1. NIRAPARIB [Suspect]
     Active Substance: NIRAPARIB
     Indication: Malignant peritoneal neoplasm
     Dosage: 100 MG, QD
     Route: 048
     Dates: start: 202211

REACTIONS (5)
  - Hypertension [Not Recovered/Not Resolved]
  - Anaemia [Recovered/Resolved]
  - Blood iron decreased [Recovered/Resolved]
  - Iron deficiency anaemia [Recovered/Resolved]
  - Incorrect dose administered [Unknown]
